FAERS Safety Report 5868592-3 (Version None)
Quarter: 2008Q3

REPORT INFORMATION
  Report Type: 
  Country: None (occurrence: None)
  Receive Date: 20080903
  Receipt Date: 20080821
  Transmission Date: 20090109
  Serious: Yes (Hospitalization, Other)
  Sender: FDA-Public Use
  Company Number: CA-ELI_LILLY_AND_COMPANY-CA200808004614

PATIENT
  Age: 85 Year
  Sex: Male

DRUGS (14)
  1. FORTEO [Suspect]
     Indication: OSTEOPOROSIS
     Dosage: 20 UG, DAILY (1/D)
     Route: 058
     Dates: start: 20080422, end: 20080819
  2. GLUCOSAMINE [Concomitant]
  3. VITAMIN D [Concomitant]
  4. CALCIUM                                 /N/A/ [Concomitant]
  5. VITA VIM [Concomitant]
  6. VERAPAMIL [Concomitant]
  7. DIGOXIN [Concomitant]
  8. POTASSIUM CHLORIDE [Concomitant]
  9. NOVOSEMIDE [Concomitant]
  10. PREDNISONE TAB [Concomitant]
  11. FLOMAX [Concomitant]
  12. DOCUSATE [Concomitant]
  13. LIPITOR [Concomitant]
  14. WARFARIN SODIUM [Concomitant]

REACTIONS (1)
  - HAEMATEMESIS [None]
